FAERS Safety Report 14753137 (Version 2)
Quarter: 2018Q2

REPORT INFORMATION
  Report Type: Spontaneous
  Country: US (occurrence: US)
  Receive Date: 20180412
  Receipt Date: 20180430
  Transmission Date: 20180711
  Serious: Yes (Hospitalization)
  Sender: FDA-Public Use
  Company Number: US-INTERCEPT-PMOCA2018000544

PATIENT

DRUGS (5)
  1. LISINOPRIL HCTZ [Concomitant]
     Active Substance: HYDROCHLOROTHIAZIDE\LISINOPRIL
  2. NPLATE [Concomitant]
     Active Substance: ROMIPLOSTIM
  3. AMOXICILLIN. [Suspect]
     Active Substance: AMOXICILLIN
  4. OCALIVA [Suspect]
     Active Substance: OBETICHOLIC ACID
     Indication: PRIMARY BILIARY CHOLANGITIS
     Dosage: 5 MG, QD
     Route: 048
     Dates: start: 20180313
  5. BROMPHENIRAMINE MALEATE W/PSEUDOEPHEDRINE HYD [Concomitant]

REACTIONS (7)
  - Internal haemorrhage [Unknown]
  - Influenza [Unknown]
  - Drug dose omission [Not Recovered/Not Resolved]
  - Lip swelling [Not Recovered/Not Resolved]
  - Sinusitis [Unknown]
  - Dysgeusia [Not Recovered/Not Resolved]
  - Pruritus [Unknown]

NARRATIVE: CASE EVENT DATE: 201803
